FAERS Safety Report 7250503-X (Version None)
Quarter: 2011Q1

REPORT INFORMATION
  Report Type: 
  Country: None (occurrence: None)
  Receive Date: 20110128
  Receipt Date: 20110118
  Transmission Date: 20110831
  Serious: Yes (Other)
  Sender: FDA-Public Use
  Company Number: PHHY2011CA04430

PATIENT
  Sex: Female

DRUGS (2)
  1. ZOMETA [Suspect]
  2. ACLASTA [Suspect]
     Indication: OSTEOPOROSIS
     Dosage: UNK
     Dates: start: 20110106

REACTIONS (9)
  - WEIGHT DECREASED [None]
  - PAIN IN EXTREMITY [None]
  - COUGH [None]
  - VOMITING [None]
  - PYREXIA [None]
  - CHILLS [None]
  - DYSPNOEA [None]
  - APHAGIA [None]
  - INFLUENZA LIKE ILLNESS [None]
